FAERS Safety Report 7928061 (Version 3)
Quarter: 2014Q1

REPORT INFORMATION
  Report Type: Spontaneous
  Country: US (occurrence: US)
  Receive Date: 20110503
  Receipt Date: 20140107
  Transmission Date: 20141002
  Serious: Yes (Other)
  Sender: FDA-Public Use
  Company Number: US-BAYER-2010-002083

PATIENT
  Age: 45 Year
  Sex: Female
  Weight: 99.77 kg

DRUGS (4)
  1. YASMIN [Suspect]
     Indication: PRODUCT USED FOR UNKNOWN INDICATION
  2. YAZ [Suspect]
     Indication: MENORRHAGIA
     Dosage: 1 DF, QD
     Dates: start: 200804, end: 200912
  3. YAZ [Suspect]
     Indication: PREMENSTRUAL SYNDROME
  4. METRONIDAZOLE [Concomitant]
     Dosage: 250 MG, UNK

REACTIONS (4)
  - Gallbladder injury [None]
  - Cholelithiasis [Recovered/Resolved]
  - Cholecystitis chronic [Recovered/Resolved]
  - Off label use [None]
